FAERS Safety Report 15450494 (Version 2)
Quarter: 2018Q4

REPORT INFORMATION
  Report Type: Spontaneous
  Country: NL (occurrence: NL)
  Receive Date: 20181001
  Receipt Date: 20181026
  Transmission Date: 20190204
  Serious: Yes (Other)
  Sender: FDA-Public Use
  Company Number: NL-ACCORD-072781

PATIENT
  Age: 60 Year
  Sex: Male

DRUGS (2)
  1. CARBIDOPA/LEVODOPA [Suspect]
     Active Substance: CARBIDOPA\LEVODOPA
     Indication: PARKINSON^S DISEASE
     Dosage: 1000 MG AS NECESSARY
     Route: 048
  2. BENSERAZIDE/LEVODOPA [Concomitant]
     Indication: PARKINSON^S DISEASE
     Dosage: 125 MG PER DAY

REACTIONS (3)
  - Renal impairment [Unknown]
  - Polyneuropathy [Unknown]
  - Vitamin B6 deficiency [Unknown]
